FAERS Safety Report 4571903-2 (Version None)
Quarter: 2005Q1

REPORT INFORMATION
  Report Type: 
  Country: None (occurrence: None)
  Receive Date: 20050202
  Receipt Date: 20050121
  Transmission Date: 20050727
  Serious: Yes (Other)
  Sender: FDA-Public Use
  Company Number: SUSI-2004-00862

PATIENT
  Age: 6 Year
  Sex: Male
  Weight: 37.7 kg

DRUGS (3)
  1. ADDERALL XR (DEXTROAMPHETAMINE SULFATE, DEXTROAMPHETAMINE SACCHARATE, [Suspect]
     Indication: ATTENTION DEFICIT/HYPERACTIVITY DISORDER
     Dosage: 25 MG, 1X/DAY;QD, ORAL
     Route: 048
     Dates: start: 20041210, end: 20041211
  2. STRATTERA [Concomitant]
  3. FLUORIDE [Concomitant]

REACTIONS (1)
  - PANIC ATTACK [None]
